FAERS Safety Report 12375905 (Version 2)
Quarter: 2016Q3

REPORT INFORMATION
  Report Type: Spontaneous
  Country: US (occurrence: US)
  Receive Date: 20160517
  Receipt Date: 20160901
  Transmission Date: 20161109
  Serious: No
  Sender: FDA-Public Use
  Company Number: US-RELYPSA-RLY2016000074

PATIENT
  Age: 60 Year
  Sex: Male

DRUGS (9)
  1. VELTASSA [Suspect]
     Active Substance: PATIROMER
     Indication: HYPERKALAEMIA
     Dosage: 8.4 GM, QD
     Route: 048
     Dates: start: 20160130
  2. NOVOLOG [Concomitant]
     Active Substance: INSULIN ASPART
  3. LISINOPRIL. [Concomitant]
     Active Substance: LISINOPRIL
  4. LASIX [Concomitant]
     Active Substance: FUROSEMIDE
  5. INSULIN (LANTUS SOLOSTAR) [Concomitant]
  6. ASPIRIN 81 (ASPIR-81) [Concomitant]
  7. GEMFIBROZIL. [Concomitant]
     Active Substance: GEMFIBROZIL
  8. JANUVIA [Concomitant]
     Active Substance: SITAGLIPTIN PHOSPHATE
  9. ZOCOR [Concomitant]
     Active Substance: SIMVASTATIN

REACTIONS (4)
  - Photopsia [Recovered/Resolved]
  - Dizziness [Recovered/Resolved]
  - Headache [Recovered/Resolved]
  - Pain [Recovered/Resolved]

NARRATIVE: CASE EVENT DATE: 20160216
